FAERS Safety Report 24609566 (Version 4)
Quarter: 2024Q4

REPORT INFORMATION
  Report Type: Spontaneous
  Country: IT (occurrence: IT)
  Receive Date: 20241112
  Receipt Date: 20241126
  Transmission Date: 20250114
  Serious: Yes (Death, Life-Threatening, Hospitalization)
  Sender: MYLAN
  Company Number: None

PATIENT
  Age: 15 Year
  Sex: Female

DRUGS (4)
  1. OLANZAPINE [Suspect]
     Active Substance: OLANZAPINE
     Indication: Product used for unknown indication
     Dosage: 16 DOSAGE FORM (CLINICAL REPORT SHOWS THAT THE REACTION OBSERVED IS DUE TO OVERDOSE)
     Route: 065
     Dates: start: 20241009
  2. ACETAMINOPHEN [Suspect]
     Active Substance: ACETAMINOPHEN
     Indication: Product used for unknown indication
     Dosage: 16 DOSAGE FORM (16 TABLET OF PARACETAMOL 1 GR.CLINICAL REPORT SHOWS THAT THE REACTION OBSERVED)
     Route: 048
     Dates: start: 20241009
  3. COLCHICINE [Suspect]
     Active Substance: COLCHICINE
     Indication: Product used for unknown indication
     Dosage: 40 DOSAGE FORM (CLINICAL REPORT SHOWS THAT THE REACTION OBSERVED IS DUE TO OVERDOSE)
     Route: 048
     Dates: start: 20241009
  4. DICLOFENAC SODIUM [Suspect]
     Active Substance: DICLOFENAC SODIUM
     Indication: Product used for unknown indication
     Dosage: 10 DOSAGE FORM (CLINICAL REPORT SHOWS THAT THE REACTION OBSERVED IS DUE TO OVERDOSE)
     Route: 048
     Dates: start: 20241009

REACTIONS (4)
  - Toxicity to various agents [Fatal]
  - Death [Fatal]
  - Overdose [Fatal]
  - Medication error [Fatal]

NARRATIVE: CASE EVENT DATE: 20241009
